FAERS Safety Report 8985566 (Version 2)
Quarter: 2013Q1

REPORT INFORMATION
  Report Type: Spontaneous
  Country: FR (occurrence: FR)
  Receive Date: 20121226
  Receipt Date: 20130122
  Transmission Date: 20140127
  Serious: Yes (Hospitalization)
  Sender: FDA-Public Use
  Company Number: FR-ASTRAZENECA-2012SE94694

PATIENT
  Age: 78 Year
  Sex: Male

DRUGS (3)
  1. ATACAND [Suspect]
     Route: 048
     Dates: start: 201206
  2. RASILEZ [Suspect]
     Dosage: DAILY
     Route: 048
     Dates: start: 201010, end: 201201
  3. BIPRETERAX [Suspect]
     Dosage: DAILY
     Route: 048
     Dates: start: 201201, end: 201206

REACTIONS (1)
  - Eczema [Recovered/Resolved]
